FAERS Safety Report 7640917-8 (Version None)
Quarter: 2011Q3

REPORT INFORMATION
  Report Type: 
  Country: None (occurrence: None)
  Receive Date: 20110728
  Receipt Date: 20110728
  Transmission Date: 20111222
  Serious: Yes (Hospitalization)
  Sender: FDA-Public Use
  Company Number: None

PATIENT
  Age: 74 Year
  Sex: Female
  Weight: 47.173 kg

DRUGS (1)
  1. LEVEMIR [Suspect]
     Indication: DIABETES MELLITUS
     Dosage: 15 UNITS
     Route: 058
     Dates: start: 20110707, end: 20110710

REACTIONS (9)
  - EYE SWELLING [None]
  - ERYTHEMA [None]
  - RASH [None]
  - PHARYNGEAL OEDEMA [None]
  - URTICARIA [None]
  - PRODUCT QUALITY ISSUE [None]
  - HYPERSENSITIVITY [None]
  - OEDEMA PERIPHERAL [None]
  - LIP SWELLING [None]
